FAERS Safety Report 25438994 (Version 1)
Quarter: 2025Q2

REPORT INFORMATION
  Report Type: Spontaneous
  Country: US (occurrence: None)
  Receive Date: 20250614
  Receipt Date: 20250614
  Transmission Date: 20250717
  Serious: Yes (Life-Threatening, Hospitalization, Disabling, Other)
  Sender: FDA-CTU
  Company Number: None

PATIENT
  Age: 35 Year
  Sex: Male
  Weight: 72 kg

DRUGS (1)
  1. HERBALS\MITRAGYNINE [Suspect]
     Active Substance: HERBALS\MITRAGYNINE
     Indication: Alcohol withdrawal syndrome
     Dates: start: 20240601, end: 20250614

REACTIONS (3)
  - Substance use [None]
  - Overdose [None]
  - Drug dependence [None]

NARRATIVE: CASE EVENT DATE: 20250601
